FAERS Safety Report 8203267 (Version 6)
Quarter: 2012Q4

REPORT INFORMATION
  Report Type: Report from Study
  Country: GB (occurrence: GB)
  Receive Date: 20111027
  Receipt Date: 20121212
  Transmission Date: 20130627
  Serious: Yes (Hospitalization)
  Sender: FDA-Public Use
  Company Number: GB-BAXTER-2011BH033115

PATIENT
  Age: 2 Year
  Sex: Female
  Weight: 13.1 kg

DRUGS (63)
  1. IFOSFAMIDE [Suspect]
     Indication: SARCOMA METASTATIC
     Dosage: 3G/M2
     Route: 042
     Dates: start: 20110712
  2. IFOSFAMIDE [Suspect]
     Dosage: 3 G/M2
     Route: 042
     Dates: start: 20110809
  3. IFOSFAMIDE [Suspect]
     Route: 042
     Dates: start: 20111012
  4. IFOSFAMIDE [Suspect]
     Dosage: 3 G/M2
     Route: 042
     Dates: start: 20111124
  5. MESNA INJECTION [Suspect]
     Indication: SARCOMA METASTATIC
     Route: 042
     Dates: start: 20110712
  6. MESNA INJECTION [Suspect]
     Route: 042
  7. MESNA INJECTION [Suspect]
     Route: 042
     Dates: start: 20110921
  8. MESNA INJECTION [Suspect]
     Dosage: 3600 MG/M2
     Route: 042
     Dates: start: 20110809
  9. MESNA INJECTION [Suspect]
     Route: 042
     Dates: start: 20111012
  10. CYCLOPHOSPHAMIDE [Suspect]
     Indication: RHABDOMYOSARCOMA
     Dosage: 11 mg
     Route: 048
     Dates: start: 20120301
  11. CYCLOPHOSPHAMIDE [Suspect]
     Dosage: 11 MG
     Route: 048
     Dates: start: 20120623
  12. NAVELBINE_VINORELBINE TARTRATE 50.00 MG_SOLUTION FOR INJECTION_VIAL, G [Suspect]
     Indication: RHABDOMYOSARCOMA
     Route: 042
     Dates: start: 20120301
  13. NAVELBINE_VINORELBINE TARTRATE 50.00 MG_SOLUTION FOR INJECTION_VIAL, G [Suspect]
     Route: 042
     Dates: start: 20120620
  14. BEVACIZUMAB [Suspect]
     Indication: SARCOMA METASTATIC
     Route: 042
     Dates: start: 20110712
  15. BEVACIZUMAB [Suspect]
     Route: 042
     Dates: start: 20110808
  16. BEVACIZUMAB [Suspect]
     Dosage: 65 MG
     Route: 042
     Dates: start: 20111011
  17. BEVACIZUMAB [Suspect]
     Dosage: 65 MG
     Route: 042
     Dates: start: 20120620
  18. VINCRISTINE [Suspect]
     Indication: SARCOMA METASTATIC
     Route: 042
     Dates: start: 20110712
  19. VINCRISTINE [Suspect]
     Dosage: 0.8 MG
     Route: 042
     Dates: start: 20110809
  20. VINCRISTINE [Suspect]
     Route: 042
     Dates: start: 20120815
  21. VINCRISTINE [Suspect]
     Route: 042
     Dates: start: 20111011
  22. VINCRISTINE [Suspect]
     Route: 042
     Dates: start: 20111123
  23. DOXORUBICIN [Suspect]
     Indication: SARCOMA METASTATIC
     Route: 042
     Dates: start: 20110712
  24. DOXORUBICIN [Suspect]
     Dosage: 16 MG
     Route: 042
     Dates: start: 20110809
  25. DOXORUBICIN [Suspect]
     Route: 042
     Dates: start: 20110831
  26. ACTINOMYCIN D [Suspect]
     Indication: SARCOMA METASTATIC
     Dosage: DAY 1 OF CYCLE
     Route: 042
     Dates: start: 20110712
  27. ACTINOMYCIN D [Suspect]
     Dosage: 0.8 MG
     Route: 042
     Dates: start: 20110808
  28. ACTINOMYCIN D [Suspect]
     Route: 042
     Dates: start: 20111123
  29. ACTINOMYCIN D [Suspect]
     Route: 042
     Dates: start: 20111011
  30. PARACETAMOL [Concomitant]
     Indication: DRUG USE FOR UNKNOWN INDICATION
     Route: 048
     Dates: start: 20110817
  31. PARACETAMOL [Concomitant]
     Indication: MUCOSITIS
     Route: 042
     Dates: start: 20110715
  32. ONDANSETRON [Concomitant]
     Indication: DRUG USE FOR UNKNOWN INDICATION
     Route: 048
     Dates: start: 20110817
  33. ONDANSETRON [Concomitant]
     Route: 048
     Dates: start: 20110901, end: 20110907
  34. ONDANSETRON [Concomitant]
     Route: 048
     Dates: start: 20110927
  35. ONDANSETRON [Concomitant]
     Route: 048
     Dates: start: 20111125, end: 20111129
  36. ONDANSETRON [Concomitant]
     Route: 048
     Dates: start: 20120915
  37. FLUCONAZOLE [Concomitant]
     Indication: DRUG USE FOR UNKNOWN INDICATION
     Route: 042
  38. LEVOMEPROMAZINE [Concomitant]
     Indication: DRUG USE FOR UNKNOWN INDICATION
     Route: 042
     Dates: start: 20110713
  39. LEVOMEPROMAZINE [Concomitant]
     Route: 042
     Dates: start: 20111125, end: 20111127
  40. CO-TRIMOXAZOLE [Concomitant]
     Indication: DRUG USE FOR UNKNOWN INDICATION
     Route: 048
     Dates: start: 20110716
  41. DOCUSATE [Concomitant]
     Indication: DRUG USE FOR UNKNOWN INDICATION
     Route: 048
     Dates: start: 20110714
  42. DOCUSATE [Concomitant]
     Route: 048
     Dates: start: 20111125
  43. DOCUSATE [Concomitant]
     Route: 048
     Dates: start: 20111230
  44. GENTAMYCIN                         /00047101/ [Concomitant]
     Indication: DRUG USE FOR UNKNOWN INDICATION
     Route: 042
     Dates: start: 20110817, end: 20110824
  45. GENTAMYCIN                         /00047101/ [Concomitant]
     Route: 042
     Dates: start: 20110722, end: 20110801
  46. GENTAMYCIN                         /00047101/ [Concomitant]
     Dates: start: 20110907
  47. GENTAMYCIN                         /00047101/ [Concomitant]
     Dates: start: 20110928
  48. PIPERACILLIN/TAZOBACTAM [Concomitant]
     Indication: DRUG USE FOR UNKNOWN INDICATION
     Dosage: 1070 QDS
     Route: 042
     Dates: start: 20110901, end: 20110907
  49. PIPERACILLIN/TAZOBACTAM [Concomitant]
     Route: 042
     Dates: start: 20110722, end: 20110728
  50. PIPERACILLIN/TAZOBACTAM [Concomitant]
     Dates: start: 20110907
  51. PIPERACILLIN/TAZOBACTAM [Concomitant]
     Route: 042
     Dates: start: 20110928
  52. MORPHINE [Concomitant]
     Indication: DRUG USE FOR UNKNOWN INDICATION
     Route: 048
     Dates: start: 20110817
  53. MORPHINE [Concomitant]
     Route: 042
     Dates: start: 20110715
  54. MOVICOL                            /01625101/ [Concomitant]
     Indication: DRUG USE FOR UNKNOWN INDICATION
     Dosage: 2 SACHETS
     Route: 065
     Dates: start: 20110820
  55. MOVICOL                            /01625101/ [Concomitant]
     Dosage: 1 SACHETS
     Route: 004
     Dates: start: 20110901, end: 20110907
  56. MOVICOL                            /01625101/ [Concomitant]
     Dosage: 2 SACHETS
     Route: 065
     Dates: start: 20120326
  57. G-CSF [Concomitant]
     Indication: DRUG USE FOR UNKNOWN INDICATION
     Route: 042
     Dates: start: 20110903
  58. G-CSF [Concomitant]
     Route: 042
     Dates: start: 20110924
  59. G-CSF [Concomitant]
     Dates: start: 20110822, end: 20110824
  60. DIHYDROCODEINE [Concomitant]
     Indication: DRUG USE FOR UNKNOWN INDICATION
     Route: 048
     Dates: start: 20110928
  61. TEMOZOLOMIDE [Concomitant]
     Indication: DRUG USE FOR UNKNOWN INDICATION
     Route: 065
     Dates: start: 20120915
  62. IRINOTECAN HYDROCHLORIDE [Concomitant]
     Indication: DRUG USE FOR UNKNOWN INDICATION
     Route: 065
     Dates: start: 20120915
  63. CEFIXIME [Concomitant]
     Indication: DRUG USE FOR UNKNOWN INDICATION
     Route: 065
     Dates: start: 20120417

REACTIONS (11)
  - None [Recovered/Resolved]
  - Fungaemia [Recovered/Resolved]
  - Febrile neutropenia [Recovered/Resolved]
  - Mucosal inflammation [Recovered/Resolved]
  - None [Recovered/Resolved]
  - None [Recovered/Resolved]
  - Epistaxis [Recovered/Resolved]
  - None [Recovered/Resolved]
  - None [Recovered/Resolved]
  - None [Recovered/Resolved]
  - Epistaxis [Recovered/Resolved]
